FAERS Safety Report 6614646-3 (Version None)
Quarter: 2010Q1

REPORT INFORMATION
  Report Type: 
  Country: None (occurrence: None)
  Receive Date: 20100226
  Receipt Date: 20100217
  Transmission Date: 20100710
  Serious: Yes (Other)
  Sender: FDA-Public Use
  Company Number: 2010SP010389

PATIENT
  Age: 27 Year
  Sex: Male

DRUGS (5)
  1. CLARITIN REDITABS [Suspect]
     Indication: DRUG USE FOR UNKNOWN INDICATION
     Dosage: PO
     Route: 048
     Dates: start: 20100213
  2. TEGRETOL [Suspect]
     Indication: CONVULSION
     Dosage: 100 MG;BDI
  3. DEPAKENE [Suspect]
     Indication: CONVULSION
     Dosage: 250 MG;BID
  4. LEVOXYL (CON.) [Concomitant]
  5. CLARINEX /01202601/ (CON.) [Concomitant]

REACTIONS (5)
  - BALANCE DISORDER [None]
  - CRYING [None]
  - DEPRESSION [None]
  - DYSSTASIA [None]
  - PETIT MAL EPILEPSY [None]
